FAERS Safety Report 4608878-3 (Version None)
Quarter: 2005Q1

REPORT INFORMATION
  Report Type: 
  Country: None (occurrence: None)
  Receive Date: 20050311
  Receipt Date: 20050301
  Transmission Date: 20050727
  Serious: Yes (Hospitalization)
  Sender: FDA-Public Use
  Company Number: 2005013835

PATIENT
  Age: 78 Year
  Sex: Male
  Weight: 56 kg

DRUGS (5)
  1. LIPITOR [Suspect]
     Indication: HYPERCHOLESTEROLAEMIA
     Dosage: 10 MG DAILY, ORAL
     Route: 048
     Dates: start: 20040609, end: 20050112
  2. PLAUNOTOL ([PLAUNOTOL) [Concomitant]
  3. ALOSENN (ACHILLEA, RUBIA ROOT TINCTURE, SENNA FRUIT, SENNA LEAF, TARAX [Concomitant]
  4. TRIAZOLAM [Concomitant]
  5. RANITIDINE HYDROCHLORIDE [Concomitant]

REACTIONS (1)
  - DIABETES MELLITUS [None]
